FAERS Safety Report 17740356 (Version 2)
Quarter: 2020Q2

REPORT INFORMATION
  Report Type: Spontaneous
  Country: JP (occurrence: JP)
  Receive Date: 20200504
  Receipt Date: 20200505
  Transmission Date: 20200714
  Serious: Yes (Other)
  Sender: FDA-Public Use
  Company Number: JP-TEVA-2020-JP-1231228

PATIENT
  Age: 54 Year
  Sex: Female

DRUGS (3)
  1. REBAMIPIDE [Suspect]
     Active Substance: REBAMIPIDE
     Route: 065
  2. IMATINIB. [Suspect]
     Active Substance: IMATINIB MESYLATE
     Indication: CHRONIC MYELOID LEUKAEMIA
     Dosage: IN FEBRUARY (YEAR NOT STATED)
     Route: 065
  3. LANSOPRAZOLE. [Suspect]
     Active Substance: LANSOPRAZOLE
     Route: 065

REACTIONS (1)
  - Bronchiolitis [Recovering/Resolving]
